FAERS Safety Report 17047831 (Version 1)
Quarter: 2019Q4

REPORT INFORMATION
  Report Type: Spontaneous
  Country: US (occurrence: US)
  Receive Date: 20191119
  Receipt Date: 20191119
  Transmission Date: 20200122
  Serious: Yes (Life-Threatening, Other)
  Sender: FDA-Public Use
  Company Number: US-AMGEN-USASP2019189280

PATIENT
  Age: 6 Year
  Sex: Male

DRUGS (9)
  1. BLINCYTO [Suspect]
     Active Substance: BLINATUMOMAB
     Dosage: 15 MICROGRAM PER MILLIGRAM
     Route: 042
     Dates: start: 20191101, end: 20191102
  2. METHOTREXATE. [Concomitant]
     Active Substance: METHOTREXATE
     Indication: ACUTE LYMPHOCYTIC LEUKAEMIA
     Dosage: UNK
     Dates: start: 20190710, end: 20191030
  3. MEROPENEM. [Concomitant]
     Active Substance: MEROPENEM
     Indication: ANTIBIOTIC THERAPY
     Dosage: UNK
     Dates: start: 20191102
  4. FLUCONAZOLE. [Concomitant]
     Active Substance: FLUCONAZOLE
     Indication: ANTIFUNGAL PROPHYLAXIS
  5. METHYLPREDNISOLONE. [Concomitant]
     Active Substance: METHYLPREDNISOLONE
     Dosage: UNK
     Dates: start: 20190711, end: 20191017
  6. ACICLOVIR [Concomitant]
     Active Substance: ACYCLOVIR
     Indication: ANTIVIRAL PROPHYLAXIS
     Dosage: UNK
     Dates: start: 20191101
  7. LEVETIRACETAM. [Concomitant]
     Active Substance: LEVETIRACETAM
     Indication: PROPHYLAXIS
     Dosage: UNK
     Dates: start: 20191101
  8. BLINCYTO [Suspect]
     Active Substance: BLINATUMOMAB
     Indication: LEUKAEMIA
     Dosage: UNK
     Route: 042
  9. INOTUZUMAB OZOGAMICIN [Suspect]
     Active Substance: INOTUZUMAB OZOGAMICIN
     Indication: ACUTE LYMPHOCYTIC LEUKAEMIA
     Dosage: 0.4 MILLIGRAM
     Route: 065
     Dates: start: 20190711, end: 20191017

REACTIONS (2)
  - Neurotoxicity [Unknown]
  - Depressed level of consciousness [Recovered/Resolved]

NARRATIVE: CASE EVENT DATE: 20191102
